FAERS Safety Report 14429665 (Version 1)
Quarter: 2018Q1

REPORT INFORMATION
  Report Type: Spontaneous
  Country: US (occurrence: US)
  Receive Date: 20180123
  Receipt Date: 20180123
  Transmission Date: 20180509
  Serious: No
  Sender: FDA-Public Use
  Company Number: US-BRISTOL-MYERS SQUIBB COMPANY-BMS-2018-005943

PATIENT
  Sex: Female
  Weight: 90.71 kg

DRUGS (1)
  1. ELIQUIS [Suspect]
     Active Substance: APIXABAN
     Indication: DEEP VEIN THROMBOSIS
     Dosage: 5 MG, BID
     Route: 065

REACTIONS (4)
  - Urinary tract infection [Unknown]
  - Urticaria [Not Recovered/Not Resolved]
  - Influenza [Unknown]
  - Dry eye [Unknown]
